FAERS Safety Report 10498008 (Version 1)
Quarter: 2014Q4

REPORT INFORMATION
  Report Type: Spontaneous
  Country: US (occurrence: None)
  Receive Date: 20141002
  Receipt Date: 20141002
  Transmission Date: 20150528
  Serious: Yes (Other)
  Sender: FDA-Public Use
  Company Number: FK201403873

PATIENT
  Age: 70 Year
  Sex: Female

DRUGS (10)
  1. CODEINE [Concomitant]
     Active Substance: CODEINE
  2. EZETIMIBE. [Concomitant]
     Active Substance: EZETIMIBE
  3. CLOPIDOGREL [Concomitant]
     Active Substance: CLOPIDOGREL BISULFATE
  4. LETROZOLE. [Suspect]
     Active Substance: LETROZOLE
     Indication: PRODUCT USED FOR UNKNOWN INDICATION
     Dates: start: 20140516
  5. NOVORAPID [Concomitant]
     Active Substance: INSULIN ASPART
  6. BUMETANIDE. [Concomitant]
     Active Substance: BUMETANIDE
  7. FOLIC ACID. [Concomitant]
     Active Substance: FOLIC ACID
  8. ALLOPURINOL. [Concomitant]
     Active Substance: ALLOPURINOL
  9. COLCINE [Concomitant]
  10. PARACETAMOL [Concomitant]
     Active Substance: ACETAMINOPHEN

REACTIONS (1)
  - Epistaxis [None]

NARRATIVE: CASE EVENT DATE: 20140801
